FAERS Safety Report 8392907-8 (Version None)
Quarter: 2012Q2

REPORT INFORMATION
  Report Type: 
  Country: None (occurrence: None)
  Receive Date: 20120529
  Receipt Date: 20120518
  Transmission Date: 20120825
  Serious: Yes (Hospitalization, Other)
  Sender: FDA-Public Use
  Company Number: US-BAXTER-2012BAX005130

PATIENT
  Sex: Female

DRUGS (3)
  1. DIANEAL [Suspect]
     Indication: PERITONEAL DIALYSIS
     Route: 033
  2. DIANEAL [Suspect]
     Route: 033
  3. MORPHINE [Suspect]
     Indication: BACK PAIN
     Route: 048

REACTIONS (5)
  - MENTAL STATUS CHANGES [None]
  - ADVERSE DRUG REACTION [None]
  - HEAD INJURY [None]
  - FALL [None]
  - PANCREAS INFECTION [None]
